FAERS Safety Report 21488264 (Version 1)
Quarter: 2022Q4

REPORT INFORMATION
  Report Type: Report from Study
  Country: US (occurrence: US)
  Receive Date: 20221020
  Receipt Date: 20221020
  Transmission Date: 20230112
  Serious: Yes (Hospitalization)
  Sender: FDA-Public Use
  Company Number: US-BoehringerIngelheim-2020-BI-023826

PATIENT
  Age: 80 Year
  Sex: Male

DRUGS (3)
  1. OFEV [Suspect]
     Active Substance: NINTEDANIB
     Indication: Idiopathic pulmonary fibrosis
     Route: 048
     Dates: start: 20200421
  2. OFEV [Suspect]
     Active Substance: NINTEDANIB
     Route: 048
  3. IMODIUM [Suspect]
     Active Substance: LOPERAMIDE HYDROCHLORIDE
     Indication: Diarrhoea

REACTIONS (19)
  - Arterial stent insertion [Unknown]
  - Muscular weakness [Unknown]
  - Chest pain [Recovered/Resolved]
  - Gastrooesophageal reflux disease [Unknown]
  - Rhinorrhoea [Not Recovered/Not Resolved]
  - Testicular pain [Unknown]
  - Vomiting [Unknown]
  - Cough [Not Recovered/Not Resolved]
  - Diarrhoea [Recovering/Resolving]
  - Faeces soft [Unknown]
  - Dizziness [Unknown]
  - Nausea [Unknown]
  - Limb mass [Unknown]
  - Arthralgia [Unknown]
  - Abdominal pain upper [Unknown]
  - Decreased appetite [Unknown]
  - Taste disorder [Unknown]
  - Constipation [Unknown]
  - Dyspepsia [Recovering/Resolving]

NARRATIVE: CASE EVENT DATE: 20220601
